FAERS Safety Report 24287008 (Version 1)
Quarter: 2024Q3

REPORT INFORMATION
  Report Type: Spontaneous
  Country: CN (occurrence: CN)
  Receive Date: 20240905
  Receipt Date: 20240905
  Transmission Date: 20241017
  Serious: Yes (Other)
  Sender: MEITHEAL PHARMACEUTICALS
  Company Number: CN-MEITHEAL-2024MPLIT00272

PATIENT
  Age: 73 Year
  Sex: Male

DRUGS (4)
  1. DACARBAZINE [Suspect]
     Active Substance: DACARBAZINE
     Indication: Hodgkin^s disease
     Dosage: FOUR CYCLES ON THE 1ST AND 15TH DAY, EACH CYCLE IS 28 DAYS
     Route: 065
     Dates: start: 201301
  2. ADRIAMYCIN [Suspect]
     Active Substance: DOXORUBICIN HYDROCHLORIDE
     Indication: Hodgkin^s disease
     Dosage: FOUR CYCLES ON THE 1ST AND 15TH DAY, EACH CYCLE IS 28 DAYS
     Route: 065
     Dates: start: 201301
  3. BLEOMYCIN [Suspect]
     Active Substance: BLEOMYCIN SULFATE
     Indication: Hodgkin^s disease
     Dosage: FOUR CYCLES ON THE 1ST AND 15TH DAY, EACH CYCLE IS 28 DAYS
     Route: 065
     Dates: start: 201301
  4. VINBLASTINE [Suspect]
     Active Substance: VINBLASTINE
     Indication: Hodgkin^s disease
     Dosage: FOUR CYCLES ON THE 1ST AND 15TH DAY, EACH CYCLE IS 28 DAYS
     Route: 065
     Dates: start: 201301

REACTIONS (1)
  - Peripheral T-cell lymphoma unspecified [Recovered/Resolved]

NARRATIVE: CASE EVENT DATE: 20151001
